FAERS Safety Report 4347576-0 (Version None)
Quarter: 2004Q1

REPORT INFORMATION
  Report Type: 
  Country: None (occurrence: None)
  Receive Date: 20040325
  Receipt Date: 20040202
  Transmission Date: 20041129
  Serious: No
  Sender: FDA-Public Use
  Company Number: USA040157887

PATIENT
  Age: 68 Year
  Sex: Female
  Weight: 63 kg

DRUGS (6)
  1. FORTEO [Suspect]
     Indication: OSTEOPOROSIS
     Dosage: 20 UG/DAY
     Dates: start: 20040114, end: 20040131
  2. AVAPRO [Concomitant]
  3. ZOCOR [Concomitant]
  4. ZYRTEC [Concomitant]
  5. GLIPIZIDE /METFORMIN [Concomitant]
  6. MULTIVITAMIN [Concomitant]

REACTIONS (10)
  - ABDOMINAL DISTENSION [None]
  - ASTHENIA [None]
  - BLADDER DISCOMFORT [None]
  - FATIGUE [None]
  - FEELING ABNORMAL [None]
  - NERVOUSNESS [None]
  - PARAESTHESIA ORAL [None]
  - THINKING ABNORMAL [None]
  - TREMOR [None]
  - URINARY TRACT INFECTION [None]
